FAERS Safety Report 19499846 (Version 3)
Quarter: 2021Q3

REPORT INFORMATION
  Report Type: Spontaneous
  Country: DE (occurrence: DE)
  Receive Date: 20210706
  Receipt Date: 20210827
  Transmission Date: 20211014
  Serious: Yes (Other)
  Sender: FDA-Public Use
  Company Number: DE-JNJFOC-20210704302

PATIENT
  Age: 52 Year
  Sex: Male

DRUGS (7)
  1. COTRIM [Concomitant]
     Active Substance: SULFAMETHOXAZOLE\TRIMETHOPRIM
     Indication: PROPHYLAXIS
  2. LEVETIRACETAM. [Concomitant]
     Active Substance: LEVETIRACETAM
     Indication: EPILEPSY
  3. CABENUVA [Suspect]
     Active Substance: CABOTEGRAVIR\RILPIVIRINE
     Indication: HIV INFECTION
     Dosage: 600/400 MG
     Route: 065
     Dates: start: 20210203
  4. VOCABRIA [Suspect]
     Active Substance: CABOTEGRAVIR SODIUM
     Indication: ANTIVIRAL TREATMENT
     Dosage: UNK
     Route: 065
  5. REKAMBYS [Suspect]
     Active Substance: RILPIVIRINE
     Indication: ANTIVIRAL TREATMENT
     Dosage: UNK
     Route: 065
  6. JULUCA [Concomitant]
     Active Substance: DOLUTEGRAVIR SODIUM\RILPIVIRINE HYDROCHLORIDE
     Indication: HIV INFECTION
     Dates: start: 20190523
  7. RUKOBIA [Concomitant]
     Active Substance: FOSTEMSAVIR TROMETHAMINE
     Indication: HIV INFECTION
     Dosage: UNK
     Route: 065

REACTIONS (4)
  - Pathogen resistance [Not Recovered/Not Resolved]
  - Virologic failure [Not Recovered/Not Resolved]
  - Off label use [Unknown]
  - Product administration error [Unknown]
